FAERS Safety Report 6376896-3 (Version None)
Quarter: 2009Q3

REPORT INFORMATION
  Report Type: 
  Country: None (occurrence: None)
  Receive Date: 20090925
  Receipt Date: 20090825
  Transmission Date: 20100115
  Serious: No
  Sender: FDA-Public Use
  Company Number: US-BAYER-200930984NA

PATIENT
  Age: 30 Year
  Sex: Female

DRUGS (1)
  1. MIRENA [Suspect]
     Indication: DRUG USE FOR UNKNOWN INDICATION
     Dosage: CONTINUOUS
     Route: 015
     Dates: start: 20090701

REACTIONS (21)
  - ABDOMINAL DISTENSION [None]
  - ABDOMINAL PAIN LOWER [None]
  - BACK PAIN [None]
  - BREAST TENDERNESS [None]
  - COMPLICATION OF DEVICE INSERTION [None]
  - DEPRESSED MOOD [None]
  - DIZZINESS [None]
  - DYSMENORRHOEA [None]
  - DYSPAREUNIA [None]
  - HEADACHE [None]
  - MIGRAINE [None]
  - NAUSEA [None]
  - NERVOUSNESS [None]
  - OEDEMA PERIPHERAL [None]
  - PELVIC PAIN [None]
  - VAGINAL DISCHARGE [None]
  - VAGINAL HAEMORRHAGE [None]
  - VAGINAL INFLAMMATION [None]
  - VISUAL IMPAIRMENT [None]
  - VOMITING [None]
  - WEIGHT INCREASED [None]
